FAERS Safety Report 9278857 (Version 2)
Quarter: 2013Q2

REPORT INFORMATION
  Report Type: Spontaneous
  Country: FR (occurrence: FR)
  Receive Date: 20130508
  Receipt Date: 20130610
  Transmission Date: 20140414
  Serious: Yes (Disabling)
  Sender: FDA-Public Use
  Company Number: FR-ASTRAZENECA-2013SE30091

PATIENT
  Age: 463 Month
  Sex: Female

DRUGS (4)
  1. PULMICORT [Suspect]
     Indication: COUGH
     Route: 055
     Dates: start: 201001, end: 201001
  2. PULMICORT [Suspect]
     Indication: DYSPHONIA
     Route: 055
     Dates: start: 201001, end: 201001
  3. ATHYMIL [Concomitant]
  4. LYSANXIA [Concomitant]

REACTIONS (2)
  - Dysphonia [Not Recovered/Not Resolved]
  - Aphonia [Recovered/Resolved]
